FAERS Safety Report 16186639 (Version 1)
Quarter: 2019Q2

REPORT INFORMATION
  Report Type: Spontaneous
  Country: GB (occurrence: GB)
  Receive Date: 20190411
  Receipt Date: 20190411
  Transmission Date: 20190711
  Serious: Yes (Other)
  Sender: FDA-Public Use
  Company Number: GB-BAUSCH-BL-2019-010333

PATIENT
  Age: 64 Year
  Sex: Female

DRUGS (1)
  1. HYDROCORTISONE ACETATE. [Suspect]
     Active Substance: HYDROCORTISONE ACETATE
     Indication: ECZEMA
     Dosage: APPLICATION TO THE EYELIDS (TREATMENT OF ECZEMA FOR 3-4 MONTHS PRIOR TO HER PRESENTATION TO CLINIC
     Route: 061

REACTIONS (2)
  - Glaucomatous optic disc atrophy [Unknown]
  - Intraocular pressure increased [Recovered/Resolved]
